FAERS Safety Report 8879097 (Version 1)
Quarter: 2012Q4

REPORT INFORMATION
  Report Type: Spontaneous
  Country: US (occurrence: None)
  Receive Date: 20121031
  Receipt Date: 20121031
  Transmission Date: 20130627
  Serious: Yes (Other)
  Sender: FDA-Public Use
  Company Number: None

PATIENT
  Age: 36 Year
  Sex: Male
  Weight: 142.5 kg

DRUGS (1)
  1. AMIODARONE [Suspect]
     Indication: ATRIAL FIBRILLATION
     Dosage: 1 mg/min continuous
     Route: 042
     Dates: start: 20120424

REACTIONS (5)
  - Screaming [None]
  - Back pain [None]
  - Muscle spasms [None]
  - Mental disorder [None]
  - Pain [None]
